FAERS Safety Report 8898119 (Version 3)
Quarter: 2014Q1

REPORT INFORMATION
  Report Type: Report from Study
  Country: FR (occurrence: FR)
  Receive Date: 20121109
  Receipt Date: 20140214
  Transmission Date: 20141002
  Serious: Yes (Other)
  Sender: FDA-Public Use
  Company Number: FR-BIOGENIDEC-2012BI050738

PATIENT
  Age: 47 Year
  Sex: Female
  Weight: 50 kg

DRUGS (6)
  1. TYSABRI [Suspect]
     Indication: MULTIPLE SCLEROSIS
     Route: 042
     Dates: start: 20070725
  2. LEXOMIL [Concomitant]
  3. ATHYMIL [Concomitant]
  4. SEROPLEX [Concomitant]
  5. UVEDOSE [Concomitant]
  6. LIORESAL [Concomitant]

REACTIONS (1)
  - Lyme disease [Recovered/Resolved]
